FAERS Safety Report 9503641 (Version 1)
Quarter: 2013Q3

REPORT INFORMATION
  Report Type: Spontaneous
  Country: IN (occurrence: IN)
  Receive Date: 20130906
  Receipt Date: 20130906
  Transmission Date: 20140515
  Serious: Yes (Other)
  Sender: FDA-Public Use
  Company Number: PHHY2013IN095377

PATIENT
  Age: 32 Year
  Sex: Male

DRUGS (8)
  1. RIFAMPICIN [Suspect]
     Indication: PULMONARY TUBERCULOSIS
     Dosage: 450 MG, UNK
     Dates: start: 20120217
  2. RIFAMPICIN [Suspect]
     Dosage: 150 MG, UNK
  3. PYRAZINAMIDE [Suspect]
     Indication: PULMONARY TUBERCULOSIS
     Dosage: 1500 MG, UNK
     Dates: start: 20120217
  4. PYRAZINAMIDE [Suspect]
     Dosage: 750 MG, UNK
  5. STREPTOMYCIN [Concomitant]
     Indication: PULMONARY TUBERCULOSIS
  6. ISONIAZID [Concomitant]
     Indication: PULMONARY TUBERCULOSIS
  7. ETHAMBUTOL [Concomitant]
     Indication: PULMONARY TUBERCULOSIS
  8. PYRIDOXINE [Concomitant]
     Indication: PULMONARY TUBERCULOSIS

REACTIONS (4)
  - Thrombocytopenia [Unknown]
  - Ecchymosis [Recovered/Resolved]
  - Petechiae [Recovered/Resolved]
  - Mouth ulceration [Recovered/Resolved]
